FAERS Safety Report 10085491 (Version 1)
Quarter: 2014Q2

REPORT INFORMATION
  Report Type: Spontaneous
  Country: US (occurrence: US)
  Receive Date: 20140418
  Receipt Date: 20140418
  Transmission Date: 20141212
  Serious: No
  Sender: FDA-Public Use
  Company Number: US-BIOGENIDEC-2014BI036240

PATIENT
  Sex: Female

DRUGS (9)
  1. TYSABRI [Suspect]
     Indication: MULTIPLE SCLEROSIS
     Route: 042
     Dates: start: 20130514
  2. ZOLOFT [Concomitant]
     Indication: PRODUCT USED FOR UNKNOWN INDICATION
     Route: 048
  3. LISINOPRIL/HYDROCHLOROTHIAZIDE [Concomitant]
     Indication: PRODUCT USED FOR UNKNOWN INDICATION
     Route: 048
  4. HYDROXYZINE HCL [Concomitant]
     Indication: PRODUCT USED FOR UNKNOWN INDICATION
     Route: 048
  5. MEDROL [Concomitant]
     Indication: PRODUCT USED FOR UNKNOWN INDICATION
  6. AMANTADINE HCL [Concomitant]
     Indication: PRODUCT USED FOR UNKNOWN INDICATION
  7. CETIRIZINE HCL [Concomitant]
     Indication: PRODUCT USED FOR UNKNOWN INDICATION
     Route: 048
  8. PRESNISONE [Concomitant]
     Indication: PRODUCT USED FOR UNKNOWN INDICATION
  9. IRON SUPPLEMENT [Concomitant]
     Indication: PRODUCT USED FOR UNKNOWN INDICATION

REACTIONS (7)
  - Pain in extremity [Unknown]
  - Musculoskeletal pain [Unknown]
  - Myalgia [Unknown]
  - Muscle spasms [Unknown]
  - Depression [Not Recovered/Not Resolved]
  - Arthralgia [Unknown]
  - Headache [Unknown]
